FAERS Safety Report 7289141 (Version 2)
Quarter: 2012Q4

REPORT INFORMATION
  Report Type: 
  Country: CA (occurrence: CA)
  Receive Date: 20100222
  Receipt Date: 20121009
  Transmission Date: 20130627
  Serious: Yes (Other)
  Sender: FDA-Public Use
  Company Number: CA-PFIZER INC-2010019138

PATIENT
  Sex: Female

DRUGS (1)
  1. CHAMPIX [Suspect]
     Indication: SMOKING CESSATION THERAPY
     Dosage: UNK
     Dates: start: 20071206, end: 200805

REACTIONS (5)
  - Suicide attempt [Unknown]
  - Depression [Unknown]
  - Abnormal behaviour [Unknown]
  - Dysgeusia [Unknown]
  - Feeling of despair [Unknown]
